FAERS Safety Report 8511712-2 (Version None)
Quarter: 2012Q3

REPORT INFORMATION
  Report Type: 
  Country: None (occurrence: None)
  Receive Date: 20120710
  Receipt Date: 20120710
  Transmission Date: 20120928
  Serious: No
  Sender: FDA-Public Use
  Company Number: None

PATIENT
  Age: 70 Year
  Sex: Female
  Weight: 68 kg

DRUGS (2)
  1. CELECOXIB [Suspect]
     Indication: KNEE ARTHROPLASTY
     Dosage: 200 MG, DAILY, PO
     Route: 048
  2. DULOXETINE HYDROCHLORIDE [Suspect]
     Indication: KNEE ARTHROPLASTY
     Dosage: 30 MG, DAILY, PO
     Route: 048

REACTIONS (5)
  - BALANCE DISORDER [None]
  - UPPER LIMB FRACTURE [None]
  - FALL [None]
  - FEMORAL NECK FRACTURE [None]
  - TRANSAMINASES INCREASED [None]
